FAERS Safety Report 4681572-9 (Version None)
Quarter: 2005Q2

REPORT INFORMATION
  Report Type: 
  Country: None (occurrence: None)
  Receive Date: 20050602
  Receipt Date: 20050516
  Transmission Date: 20051028
  Serious: Yes (Hospitalization, Other)
  Sender: FDA-Public Use
  Company Number: US_0502111693

PATIENT
  Age: 69 Year
  Sex: Female
  Weight: 68.0396 kg

DRUGS (3)
  1. FORTEO [Suspect]
     Indication: OSTEOPOROSIS
     Dosage: 20 UG/1 DAY
     Dates: start: 20041001, end: 20040531
  2. ZOLOFT [Concomitant]
  3. ASPIRIN [Concomitant]

REACTIONS (6)
  - ARTHROPATHY [None]
  - BREAST CANCER [None]
  - COLITIS ISCHAEMIC [None]
  - PAIN IN JAW [None]
  - PHARMACEUTICAL PRODUCT COMPLAINT [None]
  - VASCULAR RUPTURE [None]
